FAERS Safety Report 5941577-4 (Version None)
Quarter: 2008Q4

REPORT INFORMATION
  Report Type: 
  Country: None (occurrence: None)
  Receive Date: 20081105
  Receipt Date: 20081029
  Transmission Date: 20090506
  Serious: Yes (Death)
  Sender: FDA-Public Use
  Company Number: US-AVENTIS-200817320US

PATIENT
  Sex: Female

DRUGS (1)
  1. LANTUS [Suspect]
     Dosage: DOSE: UNK
     Route: 058

REACTIONS (1)
  - EMPHYSEMA [None]
